FAERS Safety Report 4620860-9 (Version None)
Quarter: 2005Q1

REPORT INFORMATION
  Report Type: 
  Country: None (occurrence: None)
  Receive Date: 20050325
  Receipt Date: 20050314
  Transmission Date: 20050727
  Serious: Yes (Other)
  Sender: FDA-Public Use
  Company Number: 2005045392

PATIENT
  Age: 75 Year
  Sex: Female
  Weight: 63.5036 kg

DRUGS (3)
  1. NEURONTIN [Suspect]
     Indication: HERPES ZOSTER
     Dosage: 300 MG (100 MG, 3 IN 1 D)
     Dates: start: 20041007, end: 20041201
  2. FOLIC ACID [Concomitant]
  3. UDRAMIL (TRANDOLAPRIL, VERAPAMIL HYDROCHLORIDE) [Concomitant]

REACTIONS (2)
  - DRUG INEFFECTIVE [None]
  - RENAL DISORDER [None]
